FAERS Safety Report 24267282 (Version 1)
Quarter: 2024Q3

REPORT INFORMATION
  Report Type: Spontaneous
  Country: ES (occurrence: ES)
  Receive Date: 20240830
  Receipt Date: 20240830
  Transmission Date: 20241017
  Serious: Yes (Hospitalization)
  Sender: RANBAXY
  Company Number: ES-SUN PHARMACEUTICAL INDUSTRIES LTD-2024RR-465119

PATIENT
  Age: 71 Year
  Sex: Male
  Weight: 59.5 kg

DRUGS (3)
  1. OXALIPLATIN [Suspect]
     Active Substance: OXALIPLATIN
     Indication: Adenocarcinoma gastric
     Dosage: 95.2 MILLIGRAM, 1DOSE/1CYCLIC
     Route: 040
     Dates: start: 20231013, end: 20240228
  2. FLUOROURACIL [Suspect]
     Active Substance: FLUOROURACIL
     Indication: Adenocarcinoma gastric
     Dosage: 3584 MILLIGRAM, 1DOSE/1CYCLIC
     Route: 040
     Dates: start: 20231013, end: 20240228
  3. DEXAMETHASONE [Concomitant]
     Active Substance: DEXAMETHASONE
     Indication: Adenocarcinoma gastric
     Dosage: UNK
     Route: 048
     Dates: start: 20231013

REACTIONS (3)
  - Pyrexia [Recovered/Resolved]
  - Pancytopenia [Recovered/Resolved]
  - Pneumonia [Recovered/Resolved]

NARRATIVE: CASE EVENT DATE: 20240229
